FAERS Safety Report 4938803-7 (Version None)
Quarter: 2006Q1

REPORT INFORMATION
  Report Type: 
  Country: None (occurrence: None)
  Receive Date: 20060306
  Receipt Date: 20060105
  Transmission Date: 20060701
  Serious: Yes (Hospitalization)
  Sender: FDA-Public Use
  Company Number: 200600131

PATIENT
  Age: 62 Year
  Sex: Female
  Weight: 78.9259 kg

DRUGS (9)
  1. TAZORAC [Suspect]
     Indication: PSORIASIS
     Dates: start: 20051010, end: 20051101
  2. PROTOPIC [Concomitant]
  3. OLUX FOAM [Concomitant]
  4. ATENOLOL [Concomitant]
  5. ESTROPIPATE [Concomitant]
  6. LEVOTHYROXINE SODIUM [Concomitant]
  7. PROZAC [Concomitant]
  8. NORTRIPTYLINE HCL [Concomitant]
  9. ALPRAZOLAM [Concomitant]

REACTIONS (11)
  - BLISTER [None]
  - BURNING SENSATION [None]
  - CHOLECYSTECTOMY [None]
  - CONTUSION [None]
  - DERMATITIS [None]
  - HYPERSENSITIVITY [None]
  - PAIN OF SKIN [None]
  - PLATELET COUNT INCREASED [None]
  - SKIN DISCOLOURATION [None]
  - SKIN INFECTION [None]
  - WHITE BLOOD CELL COUNT INCREASED [None]
